FAERS Safety Report 7171122-X (Version None)
Quarter: 2010Q4

REPORT INFORMATION
  Report Type: 
  Country: None (occurrence: None)
  Receive Date: 20101217
  Receipt Date: 20101104
  Transmission Date: 20110411
  Serious: Yes (Hospitalization)
  Sender: FDA-Public Use
  Company Number: PHHY2010JP67482

PATIENT
  Age: 67 Year
  Sex: Female

DRUGS (6)
  1. DIOVAN HCT [Suspect]
     Indication: HYPERTENSION
  2. DIOVAN [Suspect]
     Indication: HYPERTENSION
     Dosage: 80 MG DAILY
     Route: 048
  3. PLETAL [Suspect]
     Dosage: 100 MG
     Route: 048
  4. ADALAT [Concomitant]
     Dosage: UNK
     Route: 048
  5. MUCODYNE [Concomitant]
     Dosage: UNK
     Route: 048
  6. PULMICORT [Concomitant]
     Route: 048

REACTIONS (3)
  - CEREBRAL INFARCTION [None]
  - DERMATITIS [None]
  - SKIN EXFOLIATION [None]
